FAERS Safety Report 8798560 (Version 1)
Quarter: 2012Q4

REPORT INFORMATION
  Report Type: 
  Country: CA (occurrence: US)
  Receive Date: 20120920
  Receipt Date: 20120920
  Transmission Date: 20130627
  Serious: Yes (Hospitalization, Disabling, Other)
  Sender: FDA-Public Use
  Company Number: US-009507513-1108USA02435

PATIENT

DRUGS (6)
  1. FOSAMAX [Suspect]
     Indication: OSTEOPOROSIS
     Dosage: 10 mg, UNK
     Route: 048
     Dates: start: 199812, end: 20020225
  2. FOSAMAX [Suspect]
     Dosage: 70 mg, UNK
     Route: 048
     Dates: start: 200203, end: 200806
  3. MK-9278 [Concomitant]
     Dosage: UNK UNK, qd
     Dates: start: 1995
  4. CITRICAL [Concomitant]
     Dosage: 2 DF, qd
     Dates: start: 1995
  5. VITAMIN D (UNSPECIFIED) [Concomitant]
     Dosage: 5000 IU, qd
     Dates: start: 1995
  6. FOSAMAX [Suspect]
     Indication: OSTEOPOROSIS
     Dosage: 70 mg, QW
     Route: 048
     Dates: start: 20080713, end: 200910

REACTIONS (32)
  - Femur fracture [Recovered/Resolved]
  - Low turnover osteopathy [Not Recovered/Not Resolved]
  - Femur fracture [Unknown]
  - Fall [Unknown]
  - Device failure [Recovered/Resolved]
  - Open reduction of fracture [Unknown]
  - Internal fixation of fracture [Unknown]
  - Medical device removal [Unknown]
  - Fracture nonunion [Recovered/Resolved]
  - Femur fracture [Recovered/Resolved]
  - Periodontal disease [Unknown]
  - Tooth disorder [Unknown]
  - Tooth disorder [Unknown]
  - Tooth disorder [Unknown]
  - Mucosal atrophy [Unknown]
  - Breast mass [Unknown]
  - Facial nerve disorder [Unknown]
  - Bursitis [Unknown]
  - Limb asymmetry [Unknown]
  - Adverse drug reaction [Unknown]
  - Cardiac disorder [Unknown]
  - Joint crepitation [Unknown]
  - Joint effusion [Unknown]
  - Osteoarthritis [Unknown]
  - Meniscus injury [Unknown]
  - Aortic arteriosclerosis [Unknown]
  - Spinal osteoarthritis [Unknown]
  - Facial spasm [Unknown]
  - Hyperaesthesia [Unknown]
  - Rash erythematous [Recovering/Resolving]
  - Oedema peripheral [Unknown]
  - Pain in extremity [Unknown]
